FAERS Safety Report 8369110-0 (Version None)
Quarter: 2012Q2

REPORT INFORMATION
  Report Type: 
  Country: None (occurrence: None)
  Receive Date: 20120518
  Receipt Date: 20120508
  Transmission Date: 20120825
  Serious: Yes (Hospitalization)
  Sender: FDA-Public Use
  Company Number: HU-JNJFOC-20120413921

PATIENT
  Sex: Female
  Weight: 81 kg

DRUGS (21)
  1. GOLIMUMAB [Suspect]
     Route: 058
     Dates: start: 20100929, end: 20110803
  2. METHYLPREDNISOLONE [Concomitant]
     Route: 048
     Dates: start: 20051201
  3. VITAMIN D [Concomitant]
     Route: 048
     Dates: start: 20100101
  4. LOSARTAN POTASSIUM [Concomitant]
  5. PLACEBO [Suspect]
     Indication: RHEUMATOID ARTHRITIS
     Route: 058
     Dates: start: 20061004
  6. METHOTREXATE [Suspect]
     Route: 048
     Dates: start: 20080618
  7. LEVOTHYROXINE SODIUM [Concomitant]
     Route: 048
     Dates: start: 20110727
  8. CARVEDILOL [Concomitant]
     Route: 048
     Dates: start: 20100101
  9. FOLIC ACID [Concomitant]
     Route: 048
     Dates: start: 20061004
  10. GOLIMUMAB [Suspect]
     Route: 058
     Dates: start: 20100707
  11. METFORMIN HCL [Concomitant]
  12. GOLIMUMAB [Suspect]
     Indication: RHEUMATOID ARTHRITIS
     Route: 058
     Dates: start: 20120105, end: 20120205
  13. RABEPRAZOLE SODIUM [Concomitant]
     Route: 048
     Dates: start: 20051201
  14. GOLIMUMAB [Suspect]
     Route: 058
     Dates: start: 20110831, end: 20111105
  15. POTASSIUM CHLORIDE [Concomitant]
     Route: 048
     Dates: start: 20051201
  16. PREGABALIN [Concomitant]
  17. ESTRADIOL [Concomitant]
  18. BISOPROLOL FUMARATE [Concomitant]
     Route: 048
     Dates: start: 20051201
  19. METHOTREXATE [Suspect]
     Indication: RHEUMATOID ARTHRITIS
     Route: 048
     Dates: start: 20061004
  20. FLUCONAZOLE [Concomitant]
  21. INDOMETHACIN [Concomitant]
     Route: 054
     Dates: start: 20051201

REACTIONS (1)
  - CELLULITIS [None]
